FAERS Safety Report 9531056 (Version 1)
Quarter: 2013Q2

REPORT INFORMATION
  Report Type: Spontaneous
  Country: US (occurrence: None)
  Receive Date: 20130418
  Receipt Date: 20130418
  Transmission Date: 20140414
  Serious: Yes (Hospitalization)
  Sender: FDA-Public Use
  Company Number: 1212USA004904

PATIENT
  Sex: Male

DRUGS (4)
  1. SINGULAIR (MONTELUKAST SODIUM) TABLET [Suspect]
     Route: 048
  2. DULERA (MOMETASONE FUROATE (+) FORMOTEROL FUMARATE) [Concomitant]
  3. ADVAIR (FLUTICASONE PROPIONATE, SALMETEROL XINAFOATE) [Concomitant]
  4. SYMBICORT (BUDESONIDE, FORMOTEROL FUMARATE0 [Concomitant]

REACTIONS (3)
  - Pneumonia [None]
  - Eye disorder [None]
  - Wheezing [None]
